FAERS Safety Report 5408125-9 (Version None)
Quarter: 2007Q3

REPORT INFORMATION
  Report Type: 
  Country: None (occurrence: None)
  Receive Date: 20070808
  Receipt Date: 20070731
  Transmission Date: 20080115
  Serious: Yes (Hospitalization, Other)
  Sender: FDA-Public Use
  Company Number: GB-JNJFOC-20070800262

PATIENT
  Age: 70 Year
  Sex: Male
  Weight: 63 kg

DRUGS (13)
  1. REMICADE [Suspect]
     Indication: DRUG USE FOR UNKNOWN INDICATION
     Route: 042
  2. AMLODIPINE [Concomitant]
  3. ATORVASTATIN CALCIUM [Concomitant]
  4. CETIRIZINE HCL [Concomitant]
  5. CLEXANE [Concomitant]
     Route: 058
  6. CO-PROXAMOL [Concomitant]
  7. DOXEPIN HCL [Concomitant]
  8. FOLIC ACID [Concomitant]
  9. HYDROXYZINE [Concomitant]
  10. LORAZEPAM [Concomitant]
  11. METHOTREXATE [Concomitant]
     Route: 048
  12. ACETAMINOPHEN [Concomitant]
  13. TEMAZEPAM [Concomitant]

REACTIONS (2)
  - ECZEMA [None]
  - HEPATITIS [None]
